FAERS Safety Report 6963303-2 (Version None)
Quarter: 2010Q3

REPORT INFORMATION
  Report Type: 
  Country: None (occurrence: None)
  Receive Date: 20100902
  Receipt Date: 20100820
  Transmission Date: 20110219
  Serious: Yes (Death, Other)
  Sender: FDA-Public Use
  Company Number: DK-GENZYME-CLOF-1001106

PATIENT

DRUGS (40)
  1. EVOLTRA [Suspect]
     Indication: ACUTE MYELOID LEUKAEMIA
     Dosage: 36 MG, QD
     Route: 042
     Dates: start: 20100720, end: 20100721
  2. ALLOPURINOL [Concomitant]
     Indication: PROPHYLAXIS
     Dosage: UNK
     Dates: start: 20100716
  3. ISOPTIN [Concomitant]
     Indication: PRODUCT USED FOR UNKNOWN INDICATION
     Dosage: 120 MG, ONCE
     Dates: start: 20100715, end: 20100724
  4. CEFUROXIME [Concomitant]
     Indication: PRODUCT USED FOR UNKNOWN INDICATION
     Dosage: 1500 MG, TID
     Route: 042
     Dates: start: 20100715, end: 20100716
  5. DIGOXIN [Concomitant]
     Indication: PRODUCT USED FOR UNKNOWN INDICATION
     Dosage: 250 MG/KG, ONCE
     Route: 048
     Dates: start: 20100715, end: 20100724
  6. MENADION [Concomitant]
     Indication: PRODUCT USED FOR UNKNOWN INDICATION
     Dosage: 5 MG, ONCE
     Route: 048
     Dates: start: 20100715, end: 20100716
  7. PANTOPRAZOLE [Concomitant]
     Indication: PRODUCT USED FOR UNKNOWN INDICATION
     Dosage: 40 MG, UNK
     Route: 042
     Dates: start: 20100716, end: 20100716
  8. PANTOPRAZOLE [Concomitant]
     Dosage: UNK
     Route: 048
     Dates: start: 20100717, end: 20100730
  9. ZOSYN [Concomitant]
     Indication: PRODUCT USED FOR UNKNOWN INDICATION
     Dosage: 1 UNK, TID
     Route: 042
     Dates: start: 20100716, end: 20100716
  10. PIPERACILLIN [Concomitant]
     Indication: PRODUCT USED FOR UNKNOWN INDICATION
     Dosage: 4000 MG, TID
     Dates: start: 20100716, end: 20100721
  11. HYDROXYUREA MEDAC [Concomitant]
     Indication: PRODUCT USED FOR UNKNOWN INDICATION
     Dosage: 2000 MG, ONCE
     Route: 048
     Dates: start: 20100716, end: 20100717
  12. HYDROXYUREA MEDAC [Concomitant]
     Dosage: 2000 MG, ONCE
     Dates: start: 20100716, end: 20100720
  13. VOGALENE [Concomitant]
     Indication: PRODUCT USED FOR UNKNOWN INDICATION
     Dosage: 30 MG, ONCE
     Route: 048
     Dates: start: 20100720, end: 20100725
  14. PRIMPERAN TAB [Concomitant]
     Indication: PRODUCT USED FOR UNKNOWN INDICATION
     Dosage: 30 MG, ONCE
     Route: 048
     Dates: start: 20100720, end: 20100725
  15. ONDANSETRON [Concomitant]
     Indication: PRODUCT USED FOR UNKNOWN INDICATION
     Dosage: 16 MG, ONCE
     Route: 048
     Dates: start: 20100720, end: 20100725
  16. NATRIUMKLORID BAXTER [Concomitant]
     Indication: PRODUCT USED FOR UNKNOWN INDICATION
     Dosage: 1000 ML, ONCE
     Route: 042
     Dates: start: 20100722, end: 20100729
  17. DEXTROSE [Concomitant]
     Indication: PRODUCT USED FOR UNKNOWN INDICATION
     Dosage: 1000 ML, ONCE
     Route: 042
     Dates: start: 20100722, end: 20100729
  18. FURIX [Concomitant]
     Indication: PRODUCT USED FOR UNKNOWN INDICATION
     Dosage: 40 MG, BID
     Route: 048
     Dates: start: 20100723, end: 20100727
  19. FURIX [Concomitant]
     Dosage: 40 MG, ONCE
     Dates: start: 20100729, end: 20100730
  20. ALLOPURINOL [Concomitant]
     Indication: PRODUCT USED FOR UNKNOWN INDICATION
     Dosage: 300 MG, ONCE
     Dates: start: 20100724, end: 20100724
  21. ALLOPURINOL [Concomitant]
     Dosage: 100 MG, ONCE
     Dates: start: 20100724, end: 20100727
  22. KALEORID [Concomitant]
     Indication: PRODUCT USED FOR UNKNOWN INDICATION
     Dosage: 1500 MG, ONCE
     Dates: start: 20100724, end: 20100725
  23. KALEORID [Concomitant]
     Dosage: 3000 MG, ONCE
     Route: 048
     Dates: start: 20100728, end: 20100729
  24. KALEORID [Concomitant]
     Dosage: 1500 MG, ONCE
     Route: 048
     Dates: start: 20100728, end: 20100729
  25. KALEORID [Concomitant]
     Dosage: 1500 MG, ONCE
     Route: 048
     Dates: start: 20100729, end: 20100729
  26. EMPERAL [Concomitant]
     Indication: PRODUCT USED FOR UNKNOWN INDICATION
     Dosage: 10 MG, TID
     Dates: start: 20100726, end: 20100727
  27. STRUCTOKABIVEN [Concomitant]
     Indication: PRODUCT USED FOR UNKNOWN INDICATION
     Dosage: 1000 ML, ONCE
     Route: 042
     Dates: start: 20100726, end: 20100727
  28. SELO-ZOK [Concomitant]
     Indication: PRODUCT USED FOR UNKNOWN INDICATION
     Dosage: 25 MG, ONCE
     Route: 048
     Dates: start: 20100726, end: 20100727
  29. DIGOXIN [Concomitant]
     Dosage: UNK
     Dates: start: 20100727, end: 20100727
  30. FLUCONAZOLE [Concomitant]
     Indication: PRODUCT USED FOR UNKNOWN INDICATION
     Dosage: 400 MG, ONCE
     Route: 048
     Dates: start: 20100727, end: 20100729
  31. VANCOMYCIN [Concomitant]
     Indication: PRODUCT USED FOR UNKNOWN INDICATION
     Dosage: 1 G, ONCE
     Route: 042
     Dates: start: 20100728, end: 20100728
  32. VANCOMYCIN [Concomitant]
     Dosage: 1000 MG, ONCE
     Route: 042
     Dates: start: 20100729, end: 20100730
  33. MABLET [Concomitant]
     Indication: PRODUCT USED FOR UNKNOWN INDICATION
     Dosage: 360 MG, ONCE
     Route: 048
     Dates: start: 20100728, end: 20100730
  34. KALIUMKLORID [Concomitant]
     Indication: PRODUCT USED FOR UNKNOWN INDICATION
     Dosage: 40 MMOL, ONCE
     Dates: start: 20100729, end: 20100730
  35. KALIUMKLORID [Concomitant]
     Dosage: 20 MMOL, ONCE
     Route: 042
     Dates: start: 20100730, end: 20100731
  36. VFEND [Concomitant]
     Indication: PRODUCT USED FOR UNKNOWN INDICATION
     Dosage: 400 MG, ONCE
     Route: 048
     Dates: start: 20100729, end: 20100729
  37. CANCIDAS [Concomitant]
     Indication: PRODUCT USED FOR UNKNOWN INDICATION
     Dosage: 70 MG, ONCE
     Route: 042
     Dates: start: 20100729, end: 20100730
  38. CANCIDAS [Concomitant]
     Dosage: 50 MG, ONCE
     Route: 042
     Dates: start: 20100803, end: 20100803
  39. CETIRIZINE HCL [Concomitant]
     Indication: PRODUCT USED FOR UNKNOWN INDICATION
     Dosage: 10 MG, ONCE
     Route: 048
     Dates: start: 20100730, end: 20100803
  40. MEROPENEM [Concomitant]
     Indication: PRODUCT USED FOR UNKNOWN INDICATION
     Dosage: 1000 MG, BID
     Route: 042
     Dates: start: 20100803

REACTIONS (5)
  - BLOOD CREATININE INCREASED [None]
  - MULTI-ORGAN FAILURE [None]
  - PYREXIA [None]
  - RENAL IMPAIRMENT [None]
  - TUMOUR LYSIS SYNDROME [None]
